FAERS Safety Report 11167970 (Version 2)
Quarter: 2015Q3

REPORT INFORMATION
  Report Type: Spontaneous
  Country: GB (occurrence: GB)
  Receive Date: 20150605
  Receipt Date: 20150710
  Transmission Date: 20151125
  Serious: Yes (Hospitalization)
  Sender: FDA-Public Use
  Company Number: GB-TEVA-565069ISR

PATIENT
  Age: 57 Year
  Sex: Female
  Weight: 57.2 kg

DRUGS (16)
  1. BENZYDAMINE OROMUCOSAL [Concomitant]
     Dosage: 30 ML, 4-8 SPRAYS EVERY 1.5 TO 3 HOURS
     Route: 065
     Dates: start: 20150605
  2. NOVORAPID FLEXPEN SOLUTION [Concomitant]
     Route: 065
     Dates: start: 20150602
  3. NORTRIPTYLINE [Concomitant]
     Active Substance: NORTRIPTYLINE
     Dosage: 10 MILLIGRAM DAILY; 28 TABLETS, ONE AT NIGHT
     Route: 065
     Dates: start: 20150602
  4. NOVORAPID SOLUTION [Concomitant]
     Dosage: 4 VIALS
     Route: 065
     Dates: start: 20150602
  5. ZOLMITRIPTAN. [Concomitant]
     Active Substance: ZOLMITRIPTAN
     Dosage: 6 TABLETS TAKEN AS DIRECTED
     Route: 048
     Dates: start: 20141202
  6. LSPAGHULA HUSK [Concomitant]
     Dosage: 7 GRAM DAILY; 60 SACHETS
     Dates: start: 20150602
  7. DOXYCYCLINE. [Suspect]
     Active Substance: DOXYCYCLINE
     Indication: SINUSITIS
     Dosage: 100 MILLIGRAM DAILY;
     Route: 065
     Dates: start: 20150511, end: 20150515
  8. AZELASTINE [Concomitant]
     Active Substance: AZELASTINE
     Dosage: 44 ML DAILY;
     Route: 065
     Dates: start: 20150602
  9. FLUTICASONE [Concomitant]
     Active Substance: FLUTICASONE\FLUTICASONE PROPIONATE
     Dosage: 50 MICROGRAM DAILY; 1 X 150 DOSE, ONE SPRAY TO EACH NOSTRIL ONCE A DAY
     Route: 045
     Dates: start: 20150602
  10. CLARITHROMYCIN. [Concomitant]
     Active Substance: CLARITHROMYCIN
     Dosage: 1000 MILLIGRAM DAILY; 14 TABLETS
     Route: 065
     Dates: start: 20150605
  11. GLUCOSE GEL [Concomitant]
     Route: 048
     Dates: start: 20140124
  12. ZINERYT LOTION [Concomitant]
     Dosage: 30 ML
     Route: 065
     Dates: start: 20150317
  13. CLARITHROMYCIN. [Concomitant]
     Active Substance: CLARITHROMYCIN
     Dosage: 500 MILLIGRAM DAILY; 14 TABLETS
     Dates: start: 20150608
  14. LANTUS SOLOSTAR [Concomitant]
     Active Substance: INSULIN GLARGINE
     Route: 065
     Dates: start: 20141202
  15. REPLENS VAGINAL MOISTURISER [Concomitant]
     Dosage: 35 GRAM TUBE
     Route: 065
     Dates: start: 20150417
  16. PARACETAMOL [Concomitant]
     Active Substance: ACETAMINOPHEN
     Dosage: 4000 MILLIGRAM DAILY; 100 TABLETS, 2 TAKEN 4 TIMES DAY
     Route: 065
     Dates: start: 20150605

REACTIONS (2)
  - Vision blurred [Not Recovered/Not Resolved]
  - Visual acuity reduced [Not Recovered/Not Resolved]

NARRATIVE: CASE EVENT DATE: 20150516
